FAERS Safety Report 9863239 (Version 2)
Quarter: 2014Q1

REPORT INFORMATION
  Report Type: Spontaneous
  Country: US (occurrence: US)
  Receive Date: 20140203
  Receipt Date: 20140203
  Transmission Date: 20141002
  Serious: No
  Sender: FDA-Public Use
  Company Number: US-TEVA-455718USA

PATIENT
  Sex: 0

DRUGS (1)
  1. TREANDA [Suspect]

REACTIONS (1)
  - Rash [Recovering/Resolving]
